FAERS Safety Report 21426114 (Version 1)
Quarter: 2022Q4

REPORT INFORMATION
  Report Type: Spontaneous
  Country: US (occurrence: US)
  Receive Date: 20221008
  Receipt Date: 20221008
  Transmission Date: 20230113
  Serious: No
  Sender: FDA-Public Use
  Company Number: US-TEVA-2022-US-2076407

PATIENT
  Sex: Female

DRUGS (1)
  1. QVAR REDIHALER [Suspect]
     Active Substance: BECLOMETHASONE DIPROPIONATE
     Indication: Product used for unknown indication
     Dosage: INHALATION - AEROSOL, 80 MCG/DOSE
     Route: 065

REACTIONS (4)
  - Fatigue [Unknown]
  - Secretion discharge [Unknown]
  - Illness [Unknown]
  - Adverse event [Unknown]
